FAERS Safety Report 24636140 (Version 1)
Quarter: 2024Q4

REPORT INFORMATION
  Report Type: Spontaneous
  Country: US (occurrence: None)
  Receive Date: 20241118
  Receipt Date: 20241118
  Transmission Date: 20250114
  Serious: No
  Sender: Public
  Company Number: None

PATIENT
  Age: 69 Year
  Sex: Male

DRUGS (1)
  1. ZORYVE [Suspect]
     Active Substance: ROFLUMILAST
     Indication: Psoriasis
     Dosage: APPLY TO AFFECTED AREA(S) OF BODY DAILY AS DIRECTED?
     Dates: start: 202312

REACTIONS (1)
  - Colon operation [None]
